FAERS Safety Report 7300141-5 (Version None)
Quarter: 2011Q1

REPORT INFORMATION
  Report Type: 
  Country: None (occurrence: None)
  Receive Date: 20110217
  Receipt Date: 20110211
  Transmission Date: 20110831
  Serious: Yes (Other)
  Sender: FDA-Public Use
  Company Number: GB-BIOGENIDEC-2011BI002120

PATIENT
  Age: 58 Year
  Sex: Female

DRUGS (1)
  1. TYSABRI [Suspect]
     Indication: MULTIPLE SCLEROSIS
     Dates: end: 20110101

REACTIONS (4)
  - CONFUSIONAL STATE [None]
  - CENTRAL NERVOUS SYSTEM LYMPHOMA [None]
  - CENTRAL NERVOUS SYSTEM LESION [None]
  - CYSTITIS [None]
